FAERS Safety Report 13778456 (Version 1)
Quarter: 2017Q3

REPORT INFORMATION
  Report Type: Spontaneous
  Country: FR (occurrence: FR)
  Receive Date: 20170721
  Receipt Date: 20170721
  Transmission Date: 20171127
  Serious: Yes (Death, Hospitalization, Other)
  Sender: FDA-Public Use
  Company Number: FR-ACCORD-056046

PATIENT
  Age: 68 Year
  Sex: Male

DRUGS (8)
  1. SMECTA [Concomitant]
     Active Substance: MONTMORILLONITE
  2. EPIRUBICIN MYLAN [Suspect]
     Active Substance: EPIRUBICIN
     Indication: ADENOCARCINOMA GASTRIC
     Dosage: 92 MG IN ONE SINGLE INTAKE
     Route: 042
     Dates: start: 20170606
  3. TARDYFERON [Concomitant]
     Active Substance: FERROUS SULFATE
  4. LOXEN L P [Concomitant]
     Active Substance: NICARDIPINE HYDROCHLORIDE
     Dosage: STRENGTH: 50 MG
  5. NISISCO [Concomitant]
     Active Substance: HYDROCHLOROTHIAZIDE\VALSARTAN
     Dosage: STRENGTH: 160 MG/12.5 MG
  6. TIORFAN [Concomitant]
     Active Substance: RACECADOTRIL
  7. FLUOROURACIL ACCORD [Suspect]
     Active Substance: FLUOROURACIL
     Indication: ADENOCARCINOMA GASTRIC
     Dosage: 2562 MG, ONE SINGLE INTAKE
     Route: 042
     Dates: start: 20170606, end: 20170612
  8. OXALIPLATIN TEVA [Suspect]
     Active Substance: OXALIPLATIN
     Indication: ADENOCARCINOMA GASTRIC
     Dosage: 238 MG IN ONE SINGLE INTAKE
     Route: 042
     Dates: start: 20170606

REACTIONS (10)
  - Febrile neutropenia [Recovered/Resolved]
  - Mucosal inflammation [Not Recovered/Not Resolved]
  - Pneumatosis [Unknown]
  - Penile ulceration [Unknown]
  - Death [Fatal]
  - Diarrhoea [Not Recovered/Not Resolved]
  - Behcet^s syndrome [Not Recovered/Not Resolved]
  - Nausea [Unknown]
  - Respiratory distress [Unknown]
  - Enteritis [Unknown]

NARRATIVE: CASE EVENT DATE: 20170609
